FAERS Safety Report 9563708 (Version 1)
Quarter: 2013Q3

REPORT INFORMATION
  Report Type: Spontaneous
  Country: US (occurrence: None)
  Receive Date: 20130926
  Receipt Date: 20130926
  Transmission Date: 20140515
  Serious: Yes (Other)
  Sender: FDA-Public Use
  Company Number: None

PATIENT
  Age: 49 Year
  Sex: Male
  Weight: 68.49 kg

DRUGS (2)
  1. BUPROPION XL [Suspect]
     Indication: MAJOR DEPRESSION
     Dosage: 3 PILLS
     Route: 048
     Dates: start: 20130904, end: 20130920
  2. FLUOXETINE [Concomitant]

REACTIONS (3)
  - Asthenia [None]
  - Fatigue [None]
  - Product substitution issue [None]
